FAERS Safety Report 10461290 (Version 1)
Quarter: 2014Q3

REPORT INFORMATION
  Report Type: Spontaneous
  Country: US (occurrence: FR)
  Receive Date: 20140918
  Receipt Date: 20140918
  Transmission Date: 20150326
  Serious: Yes (Hospitalization)
  Sender: FDA-Public Use
  Company Number: 2014SP005346

PATIENT
  Age: 89 Year
  Sex: Female

DRUGS (17)
  1. CELIPROLOL [Concomitant]
     Active Substance: CELIPROLOL
  2. ARIXTRA [Concomitant]
     Active Substance: FONDAPARINUX SODIUM
  3. VANCOMYCIN [Suspect]
     Active Substance: VANCOMYCIN
     Indication: DEVICE RELATED INFECTION
     Route: 042
     Dates: start: 20140430
  4. AMIKACIN SULFATE. [Suspect]
     Active Substance: AMIKACIN SULFATE
     Indication: DEVICE RELATED INFECTION
     Route: 042
     Dates: start: 20140430
  5. EUPANTOL [Concomitant]
     Active Substance: PANTOPRAZOLE SODIUM
  6. NOVORAPID [Concomitant]
     Active Substance: INSULIN ASPART
  7. PIPERACILLIN/TAZOBACTAM [Suspect]
     Active Substance: PIPERACILLIN SODIUM\TAZOBACTAM SODIUM
     Indication: DEVICE RELATED INFECTION
     Route: 042
     Dates: start: 20140430, end: 20140502
  8. LYRICA [Concomitant]
     Active Substance: PREGABALIN
  9. DEROXAT [Concomitant]
     Active Substance: PAROXETINE HYDROCHLORIDE
  10. TAHOR [Concomitant]
     Active Substance: ATORVASTATIN CALCIUM
  11. STRESAM [Concomitant]
     Active Substance: ETIFOXINE
  12. LANTUS [Concomitant]
     Active Substance: INSULIN GLARGINE
  13. AMIKACIN SULFATE. [Suspect]
     Active Substance: AMIKACIN SULFATE
     Indication: DEVICE RELATED INFECTION
     Route: 042
     Dates: end: 20140502
  14. KARDEGIC [Concomitant]
     Active Substance: ASPIRIN LYSINE
  15. TRANSIPEG /00754501/ [Concomitant]
     Active Substance: POLYETHYLENE GLYCOL 3350
  16. LIORESAL DS [Concomitant]
  17. IXPRIM [Concomitant]
     Active Substance: ACETAMINOPHEN\TRAMADOL HYDROCHLORIDE

REACTIONS (4)
  - Confusional state [Recovered/Resolved]
  - Echolalia [Recovered/Resolved]
  - Disturbance in attention [Recovered/Resolved]
  - Rash [Recovered/Resolved]

NARRATIVE: CASE EVENT DATE: 20140430
